FAERS Safety Report 14571294 (Version 1)
Quarter: 2018Q1

REPORT INFORMATION
  Report Type: Spontaneous
  Country: US (occurrence: US)
  Receive Date: 20180223
  Receipt Date: 20180223
  Transmission Date: 20180509
  Serious: Yes (Death)
  Sender: FDA-Public Use
  Company Number: None

PATIENT
  Age: 49 Year
  Sex: Female

DRUGS (8)
  1. DICLOFENAC [Concomitant]
     Active Substance: DICLOFENAC
  2. PREDNISONE. [Concomitant]
     Active Substance: PREDNISONE
  3. TRAMADOL. [Concomitant]
     Active Substance: TRAMADOL
  4. HUMIRA [Suspect]
     Active Substance: ADALIMUMAB
     Indication: PRODUCT USED FOR UNKNOWN INDICATION
     Route: 058
     Dates: start: 20171107, end: 201802
  5. SUMATRIP [Concomitant]
  6. FUROSEMIDE. [Concomitant]
     Active Substance: FUROSEMIDE
  7. PROAIR HFA [Concomitant]
     Active Substance: ALBUTEROL SULFATE
  8. LYRICA [Concomitant]
     Active Substance: PREGABALIN

REACTIONS (1)
  - Death [None]

NARRATIVE: CASE EVENT DATE: 20180212
